FAERS Safety Report 6026749-5 (Version None)
Quarter: 2009Q1

REPORT INFORMATION
  Report Type: 
  Country: None (occurrence: None)
  Receive Date: 20090105
  Receipt Date: 20081223
  Transmission Date: 20090719
  Serious: Yes (Hospitalization)
  Sender: FDA-Public Use
  Company Number: US-BAYER-200833741NA

PATIENT
  Age: 35 Year
  Sex: Female
  Weight: 82 kg

DRUGS (4)
  1. BETASERON [Suspect]
     Indication: RELAPSING-REMITTING MULTIPLE SCLEROSIS
     Dosage: TOTAL DAILY DOSE: 2 MIU
     Route: 058
     Dates: start: 20080911, end: 20080913
  2. KLONOPIN [Concomitant]
     Dosage: TOTAL DAILY DOSE: 0.5 MG
  3. CITALOPRAM [Concomitant]
     Dosage: TOTAL DAILY DOSE: 20 MG
  4. VERAPAMIL [Concomitant]

REACTIONS (7)
  - DYSPNOEA [None]
  - EYE SWELLING [None]
  - HYPERSENSITIVITY [None]
  - LIP SWELLING [None]
  - OROPHARYNGEAL PAIN [None]
  - THROAT TIGHTNESS [None]
  - URTICARIA [None]
